FAERS Safety Report 10162483 (Version 1)
Quarter: 2014Q2

REPORT INFORMATION
  Report Type: Spontaneous
  Country: GB (occurrence: None)
  Receive Date: 20140507
  Receipt Date: 20140507
  Transmission Date: 20141212
  Serious: Yes (Other)
  Sender: FDA-Public Use
  Company Number: AUR-APL-2014-05220

PATIENT
  Age: 48 Year
  Sex: Male
  Weight: 95 kg

DRUGS (3)
  1. BISOPROLOL (BISOPROLOL) [Suspect]
     Indication: EXTRASYSTOLES
     Route: 048
     Dates: start: 20110810
  2. AMLODIPINE (AMLODIPINE) [Concomitant]
  3. OMEPRAZOLE (OMPERAZOLE) [Concomitant]

REACTIONS (2)
  - Sleep apnoea syndrome [None]
  - Insomnia [None]
